FAERS Safety Report 16940661 (Version 1)
Quarter: 2019Q4

REPORT INFORMATION
  Report Type: Spontaneous
  Country: US (occurrence: US)
  Receive Date: 20191021
  Receipt Date: 20191021
  Transmission Date: 20200122
  Serious: Yes (Other)
  Sender: FDA-Public Use
  Company Number: US-UCBSA-2019043533

PATIENT
  Age: 7 Year
  Sex: Male
  Weight: 71 kg

DRUGS (6)
  1. LAMICTAL XR [Concomitant]
     Active Substance: LAMOTRIGINE
     Indication: EPILEPSY
  2. DIASTAT ACUDIAL [Concomitant]
     Active Substance: DIAZEPAM
     Indication: EPILEPSY
     Dosage: UNK
  3. CLARITIN [Concomitant]
     Active Substance: LORATADINE
     Indication: SEASONAL ALLERGY
  4. PRISTIQ EXTENDED-RELEASE [Concomitant]
     Active Substance: DESVENLAFAXINE SUCCINATE
     Indication: ANXIETY
  5. KLONOPIN [Concomitant]
     Active Substance: CLONAZEPAM
     Indication: EPILEPSY
  6. KEPPRA XR [Suspect]
     Active Substance: LEVETIRACETAM
     Indication: EPILEPSY
     Dosage: 2000 MILLIGRAM, 2X/DAY (BID)
     Dates: start: 20010101, end: 20180204

REACTIONS (10)
  - Topectomy [Unknown]
  - Chest pain [Not Recovered/Not Resolved]
  - Off label use [Unknown]
  - Vagal nerve stimulator implantation [Unknown]
  - Overdose [Unknown]
  - Leukocytosis [Not Recovered/Not Resolved]
  - Major depression [Not Recovered/Not Resolved]
  - Drug hypersensitivity [Not Recovered/Not Resolved]
  - Neuroprosthesis implantation [Not Recovered/Not Resolved]
  - Hyperglycaemia [Not Recovered/Not Resolved]

NARRATIVE: CASE EVENT DATE: 20010101
